FAERS Safety Report 4683083-3 (Version None)
Quarter: 2005Q2

REPORT INFORMATION
  Report Type: 
  Country: None (occurrence: None)
  Receive Date: 20050606
  Receipt Date: 20050602
  Transmission Date: 20051028
  Serious: Yes (Disabling)
  Sender: FDA-Public Use
  Company Number: LB-MERCK-0506USA00517

PATIENT
  Age: 58 Year
  Sex: Male
  Weight: 114 kg

DRUGS (3)
  1. HYZAAR [Suspect]
     Indication: HYPERTENSION
     Route: 048
     Dates: start: 20050101, end: 20050101
  2. STARIL [Concomitant]
     Route: 065
     Dates: end: 20050101
  3. [THERAPY UNSPECIFIED] [Concomitant]
     Route: 065

REACTIONS (1)
  - DERMATITIS ALLERGIC [None]
